FAERS Safety Report 4578521-0 (Version None)
Quarter: 2005Q1

REPORT INFORMATION
  Report Type: 
  Country: None (occurrence: None)
  Receive Date: 20050209
  Receipt Date: 20050201
  Transmission Date: 20050727
  Serious: Yes (Life-Threatening, Hospitalization, Other)
  Sender: FDA-Public Use
  Company Number: 2004033914

PATIENT
  Age: 28 Year
  Sex: Female
  Weight: 58 kg

DRUGS (8)
  1. NEURONTIN [Suspect]
     Indication: EPILEPSY
     Dosage: 2100 MG (D), ORAL
     Route: 048
     Dates: start: 20040201, end: 20040312
  2. DALACIN OVULOS (CLINDAMYCIN HYDROCHLORIDE) (CLINDAMYCIN PALMITATE HYDR [Suspect]
     Indication: ILL-DEFINED DISORDER
     Dates: start: 20040312, end: 20040313
  3. UDRAMIL (TRANDOLAPRIL, VERAPAMIL HYDROCHLORIDE) [Suspect]
     Indication: ILL-DEFINED DISORDER
     Dosage: 1 IN 1 D, ORAL
     Route: 048
  4. TORSEMIDE [Suspect]
     Indication: ILL-DEFINED DISORDER
     Dosage: 10 MG (10 MG, 1 IN 1 D), ORAL
     Route: 048
  5. IRBESARTAN [Concomitant]
  6. MOXONIDINE (MOXONIDINE) [Concomitant]
  7. INSULIN [Concomitant]
  8. INITARD (INSULIN, INSULIN INJECTION, ISOPHANE) [Concomitant]

REACTIONS (12)
  - ANAEMIA [None]
  - EPILEPSY [None]
  - GASTRIC DISORDER [None]
  - GENERALISED OEDEMA [None]
  - HEPATIC ENZYME INCREASED [None]
  - LIVER DISORDER [None]
  - PLEURAL EFFUSION [None]
  - PNEUMONIA [None]
  - PULMONARY OEDEMA [None]
  - TACHYCARDIA [None]
  - TACHYPNOEA [None]
  - WEIGHT DECREASED [None]
